FAERS Safety Report 18130395 (Version 2)
Quarter: 2020Q3

REPORT INFORMATION
  Report Type: Report from Study
  Country: CR (occurrence: CR)
  Receive Date: 20200810
  Receipt Date: 20200826
  Transmission Date: 20201103
  Serious: Yes (Hospitalization)
  Sender: FDA-Public Use
  Company Number: NVSC2020CR219728

PATIENT
  Age: 77 Year
  Sex: Male

DRUGS (5)
  1. BRITOMAR [Concomitant]
     Active Substance: TORSEMIDE
     Indication: PRODUCT USED FOR UNKNOWN INDICATION
     Dosage: 1 DF, QD (AT NIGHT) (START TREATMENT DATE: 8 MONTHS AGO APPROXIMATELY)
     Route: 048
     Dates: end: 202005
  2. LORATADINE. [Concomitant]
     Active Substance: LORATADINE
     Indication: PRODUCT USED FOR UNKNOWN INDICATION
     Dosage: 1 DF, QD (STARTED SEVERAL YEARS AGO)
     Route: 048
  3. CLONAZEPAM. [Concomitant]
     Active Substance: CLONAZEPAM
     Indication: PRODUCT USED FOR UNKNOWN INDICATION
     Dosage: 1 DF, QD (AT NIGHT) 9SEVERAL YEARS AGO)
     Route: 065
  4. VYMADA [Suspect]
     Active Substance: SACUBITRIL\VALSARTAN
     Indication: CARDIAC DISORDER
     Dosage: 100 MG, BID ((8 MONTHS AGO) (1 TAB IN MORNING AND 1 IN THE AFTERNOON)
     Route: 065
     Dates: end: 202005
  5. FUROSEMIDE. [Concomitant]
     Active Substance: FUROSEMIDE
     Indication: PRODUCT USED FOR UNKNOWN INDICATION
     Dosage: 1 DF, QD (MORNING) (START TREATMENT DATE: 8 MONTHS AGO APPROXIMATELY)
     Route: 065

REACTIONS (7)
  - Asthenia [Unknown]
  - Inappropriate schedule of product administration [Unknown]
  - Product use in unapproved indication [Unknown]
  - Asphyxia [Recovering/Resolving]
  - Illness [Unknown]
  - Hypotension [Unknown]
  - Hypercoagulation [Unknown]
